FAERS Safety Report 24096005 (Version 1)
Quarter: 2024Q3

REPORT INFORMATION
  Report Type: Spontaneous
  Country: IN (occurrence: IN)
  Receive Date: 20240716
  Receipt Date: 20240716
  Transmission Date: 20241017
  Serious: Yes (Other)
  Sender: AMGEN
  Company Number: IN-AMGEN-INDSP2024138049

PATIENT
  Age: 38 Year
  Sex: Male

DRUGS (3)
  1. XGEVA [Suspect]
     Active Substance: DENOSUMAB
     Indication: Bone giant cell tumour
     Dosage: 120 MILLIGRAM, ON DAYS 0, 8, 15, 30 AND 60
     Route: 058
  2. CALCIUM [Concomitant]
     Active Substance: CALCIUM
     Indication: Bone giant cell tumour
     Dosage: 500 MILLIGRAM, SUPPLEMENTAL DOSE
  3. VITAMIN D [Concomitant]
     Active Substance: VITAMIN D NOS
     Indication: Bone giant cell tumour
     Dosage: 400 INTERNATIONAL UNIT, SUPPLEMENTAL DOSES
     Route: 065

REACTIONS (1)
  - Bone giant cell tumour [Unknown]
